FAERS Safety Report 11635494 (Version 3)
Quarter: 2015Q4

REPORT INFORMATION
  Report Type: Report from Study
  Country: CN (occurrence: CN)
  Receive Date: 20151016
  Receipt Date: 20151214
  Transmission Date: 20160304
  Serious: Yes (Death)
  Sender: FDA-Public Use
  Company Number: CN-ROCHE-1646095

PATIENT
  Age: 69 Year
  Sex: Male
  Weight: 67 kg

DRUGS (6)
  1. DIPHENHYDRAMINE HYDROCHLORIDE. [Concomitant]
     Active Substance: DIPHENHYDRAMINE HYDROCHLORIDE
     Indication: PREMEDICATION
     Route: 065
     Dates: start: 20140506, end: 20150921
  2. VINCRISTINE [Suspect]
     Active Substance: VINCRISTINE
     Indication: NON-HODGKIN^S LYMPHOMA UNSPECIFIED HISTOLOGY INDOLENT
     Dosage: DOSE OF LAST VINCRISTINE TAKEN: 2 MG.?DATE OF MOST RECENT DOSE PRIOR TO SAE: 10/OCT/2013.
     Route: 042
  3. CYCLOPHOSPHAMIDE. [Suspect]
     Active Substance: CYCLOPHOSPHAMIDE
     Indication: NON-HODGKIN^S LYMPHOMA UNSPECIFIED HISTOLOGY INDOLENT
     Dosage: DOSE OF LAST CYCLOPHOSPHAMIDE TAKEN: 1335 MG.?DATE OF MOST RECENT DOSE PRIOR TO SAE: 10/OCT/2013
     Route: 042
     Dates: start: 20130626
  4. PREDNISONE. [Suspect]
     Active Substance: PREDNISONE
     Indication: NON-HODGKIN^S LYMPHOMA UNSPECIFIED HISTOLOGY INDOLENT
     Dosage: DOSE OF LAST PREDNISONE TAKEN: 100 MG.?DATE OF LAST DOSE: 13/OCT/2015.
     Route: 048
     Dates: start: 20130626
  5. DOXORUBICIN [Suspect]
     Active Substance: DOXORUBICIN
     Indication: NON-HODGKIN^S LYMPHOMA UNSPECIFIED HISTOLOGY INDOLENT
     Dosage: DOSE OF LAST DOXORUBICIN TAKEN: 89 MG.?DATE OF MOST RECENT DOSE PRIOR TO SAE: 10/OCT/2013.
     Route: 042
     Dates: start: 20130626
  6. RITUXIMAB [Suspect]
     Active Substance: RITUXIMAB
     Indication: NON-HODGKIN^S LYMPHOMA UNSPECIFIED HISTOLOGY INDOLENT
     Dosage: VOLUME OF LAST RITUXIMAB TAKEN: 334 ML.?DOSE CONCENTRATION OF LAST RITUXIMAB TAKEN: 2 MG/ML?DATE OF
     Route: 042
     Dates: start: 20130625

REACTIONS (1)
  - Lung adenocarcinoma [Fatal]

NARRATIVE: CASE EVENT DATE: 20151010
